FAERS Safety Report 24992178 (Version 2)
Quarter: 2025Q1

REPORT INFORMATION
  Report Type: Spontaneous
  Country: BR (occurrence: BR)
  Receive Date: 20250220
  Receipt Date: 20250306
  Transmission Date: 20250409
  Serious: Yes (Death, Hospitalization)
  Sender: TEVA
  Company Number: BR-Pharmaand-2025000149

PATIENT
  Age: 64 Year
  Sex: Female

DRUGS (1)
  1. BENDAMUSTINE [Suspect]
     Active Substance: BENDAMUSTINE
     Indication: Waldenstrom^s macroglobulinaemia
     Route: 050

REACTIONS (3)
  - Sepsis [Fatal]
  - Renal failure [Unknown]
  - Peritonitis [Unknown]
